FAERS Safety Report 4808940-6 (Version None)
Quarter: 2005Q4

REPORT INFORMATION
  Report Type: 
  Country: None (occurrence: None)
  Receive Date: 20051020
  Receipt Date: 20051020
  Transmission Date: 20060501
  Serious: Yes (Death)
  Sender: FDA-Public Use
  Company Number: None

PATIENT
  Sex: Female
  Weight: 147.9 kg

DRUGS (9)
  1. FLUOROURACIL [Suspect]
     Indication: BREAST CANCER
     Dosage: SEE IMAGE
     Dates: end: 20051004
  2. FLUOROURACIL [Suspect]
     Indication: BREAST CANCER
     Dosage: SEE IMAGE
     Dates: start: 20050927
  3. CYCLOPHOSPHAMIDE [Suspect]
     Dosage: SEE IMAGE
     Dates: end: 20051010
  4. METHOTREXATE [Suspect]
     Dosage: SEE IMAGE
     Dates: end: 20051004
  5. LASIX [Concomitant]
  6. LIPITOR [Concomitant]
  7. LOTENSIN [Concomitant]
  8. PROZAC [Concomitant]
  9. TOPROL-XL [Concomitant]

REACTIONS (1)
  - MYOCARDIAL INFARCTION [None]
